FAERS Safety Report 6454568-4 (Version None)
Quarter: 2009Q4

REPORT INFORMATION
  Report Type: 
  Country: None (occurrence: None)
  Receive Date: 20091118
  Receipt Date: 20091106
  Transmission Date: 20100525
  Serious: Yes (Hospitalization)
  Sender: FDA-Public Use
  Company Number: CERZ-1001021

PATIENT
  Age: 71 Year
  Sex: Female
  Weight: 88 kg

DRUGS (1)
  1. CEREZYME [Suspect]
     Indication: GAUCHER'S DISEASE
     Dosage: 4400 U, Q3W, INTRAVENOUS
     Route: 042
     Dates: start: 19970418

REACTIONS (10)
  - BONE PAIN [None]
  - CAROTID ARTERY OCCLUSION [None]
  - FALL [None]
  - GOUT [None]
  - JOINT INJURY [None]
  - JOINT SWELLING [None]
  - MYOCARDIAL INFARCTION [None]
  - OEDEMA PERIPHERAL [None]
  - PYREXIA [None]
  - STEVENS-JOHNSON SYNDROME [None]
